FAERS Safety Report 13737758 (Version 2)
Quarter: 2018Q2

REPORT INFORMATION
  Report Type: Report from Study
  Country: US (occurrence: US)
  Receive Date: 20170710
  Receipt Date: 20180627
  Transmission Date: 20180711
  Serious: No
  Sender: FDA-Public Use
  Company Number: US-SAOL THERAPEUTICS-2016SAO00737

PATIENT
  Age: 56 Year
  Sex: Male

DRUGS (24)
  1. COMPOUNDED BACLOFEN [Suspect]
     Active Substance: BACLOFEN
     Indication: POST LAMINECTOMY SYNDROME
     Dosage: 249.92 ?G, \DAY
     Route: 037
     Dates: start: 20150528, end: 20150803
  2. COMPOUNDED BACLOFEN [Suspect]
     Active Substance: BACLOFEN
     Indication: PAIN
     Dosage: 201.83 ?G, \DAY
     Route: 037
     Dates: start: 20150803
  3. HYDROMORPHONE [Suspect]
     Active Substance: HYDROMORPHONE
     Dosage: 1.4983 MG, \DAY
     Route: 037
     Dates: start: 20161117, end: 20170525
  4. BUPIVACAINE. [Suspect]
     Active Substance: BUPIVACAINE
     Dosage: 4.495 MG, \DAY
     Route: 037
     Dates: start: 20161117, end: 20170525
  5. BUPIVACAINE. [Suspect]
     Active Substance: BUPIVACAINE
     Dosage: 6.827 MG, \DAY-MAX
     Route: 037
     Dates: start: 20160825, end: 20161117
  6. COMPOUNDED BACLOFEN [Suspect]
     Active Substance: BACLOFEN
     Indication: PAIN
     Dosage: 84.94 ?G, \DAY
     Route: 037
     Dates: start: 20170525
  7. HYDROMORPHONE [Suspect]
     Active Substance: HYDROMORPHONE
     Dosage: 1.7851 MG, \DAY
     Route: 037
     Dates: start: 20150528, end: 20150803
  8. HYDROMORPHONE [Suspect]
     Active Substance: HYDROMORPHONE
     Dosage: 1.6989 MG, \DAY
     Route: 037
     Dates: start: 20170525
  9. HYDROMORPHONE [Suspect]
     Active Substance: HYDROMORPHONE
     Dosage: 2.2757 MG, \DAY-MAX
     Route: 037
     Dates: start: 20160825, end: 20161117
  10. HYDROMORPHONE [Suspect]
     Active Substance: HYDROMORPHONE
     Dosage: 2.5233 MG, \DAY-MAX
     Route: 037
     Dates: start: 20161117, end: 20170525
  11. BUPIVACAINE. [Suspect]
     Active Substance: BUPIVACAINE
     Dosage: 4.105 MG, \DAY
     Route: 037
     Dates: start: 20160825, end: 20161117
  12. COMPOUNDED BACLOFEN [Suspect]
     Active Substance: BACLOFEN
     Indication: POST LAMINECTOMY SYNDROME
     Dosage: 95.78 ?G, \DAY
     Route: 037
     Dates: start: 20160825, end: 20161117
  13. BUPIVACAINE. [Suspect]
     Active Substance: BUPIVACAINE
     Dosage: 5.355 MG, \DAY
     Route: 037
     Dates: start: 20150528, end: 20150803
  14. BUPIVACAINE. [Suspect]
     Active Substance: BUPIVACAINE
     Dosage: 7.570 MG, \DAY-MAX
     Route: 037
     Dates: start: 20161117, end: 20170525
  15. COMPOUNDED BACLOFEN [Suspect]
     Active Substance: BACLOFEN
     Indication: PAIN
     Dosage: 159.30 ?G, \DAY MAX
     Route: 037
     Dates: start: 20160825, end: 20161117
  16. COMPOUNDED BACLOFEN [Suspect]
     Active Substance: BACLOFEN
     Dosage: 173.80 ?G, \DAY[MAX]
     Route: 037
     Dates: start: 20170525
  17. BUPIVACAINE. [Suspect]
     Active Substance: BUPIVACAINE
     Dosage: 5.097 MG, \DAY
     Route: 037
     Dates: start: 20170525
  18. COMPOUNDED BACLOFEN [Suspect]
     Active Substance: BACLOFEN
     Indication: POST LAMINECTOMY SYNDROME
     Dosage: 74.92 ?G, \DAY
     Route: 037
     Dates: start: 20161117, end: 20170525
  19. COMPOUNDED BACLOFEN [Suspect]
     Active Substance: BACLOFEN
     Dosage: 126.16 ?G, \DAY [MAX]
     Route: 037
     Dates: start: 20161117, end: 20170525
  20. HYDROMORPHONE [Suspect]
     Active Substance: HYDROMORPHONE
     Dosage: 1.4416 MG, \DAY
     Route: 037
     Dates: start: 20150803
  21. HYDROMORPHONE [Suspect]
     Active Substance: HYDROMORPHONE
     Dosage: 1.3682 MG, \DAY
     Route: 037
     Dates: start: 20160825, end: 20161117
  22. HYDROMORPHONE [Suspect]
     Active Substance: HYDROMORPHONE
     Dosage: 3.4759 MG, \DAY-MAX
     Route: 037
     Dates: start: 20170525
  23. BUPIVACAINE. [Suspect]
     Active Substance: BUPIVACAINE
     Dosage: 4.325 MG, \DAY
     Route: 037
     Dates: start: 20150803
  24. BUPIVACAINE. [Suspect]
     Active Substance: BUPIVACAINE
     Dosage: 10.428 MG, \DAY-MAX
     Route: 037
     Dates: start: 20170525

REACTIONS (5)
  - Somnolence [Recovered/Resolved]
  - Sedation [Recovered/Resolved]
  - Off label use [Unknown]
  - Implant site pain [Recovered/Resolved]
  - Feeling abnormal [Recovered/Resolved]

NARRATIVE: CASE EVENT DATE: 20151119
